FAERS Safety Report 12655279 (Version 1)
Quarter: 2016Q3

REPORT INFORMATION
  Report Type: Report from Study
  Country: SE (occurrence: SE)
  Receive Date: 20160816
  Receipt Date: 20160816
  Transmission Date: 20161109
  Serious: Yes (Other)
  Sender: FDA-Public Use
  Company Number: SE-PFIZER INC-2016373081

PATIENT
  Age: 29 Year
  Sex: Female

DRUGS (10)
  1. DOXORUBICIN HCL [Suspect]
     Active Substance: DOXORUBICIN HYDROCHLORIDE
     Dosage: 30 MG/M2, ON DAY 1 (COURSES 5-8)
  2. CYTARABINE. [Concomitant]
     Active Substance: CYTARABINE
     Dosage: 200 MG/M2, DURING 6 H ON DAYS 1-5 (COURSE 9-12)
     Route: 041
  3. VINCRISTINE [Concomitant]
     Active Substance: VINCRISTINE
     Indication: ACUTE MYELOID LEUKAEMIA
     Dosage: 2 MG, ON DAYS 1 AND 5
     Route: 042
  4. DOXORUBICIN HCL [Suspect]
     Active Substance: DOXORUBICIN HYDROCHLORIDE
     Dosage: 45 MG/M2, ON DAY 1 (COURSES 1-4)
     Route: 042
  5. CYTARABINE. [Concomitant]
     Active Substance: CYTARABINE
     Dosage: 200 MG/M2, DURING 6 H ON DAYS 1-5 (COURSE 1-4)
     Route: 041
  6. THIOGUANINE [Concomitant]
     Active Substance: THIOGUANINE
     Indication: ACUTE MYELOID LEUKAEMIA
     Dosage: 50 MG/M2, ON DAYS 1-7
     Route: 048
  7. CYTARABINE. [Concomitant]
     Active Substance: CYTARABINE
     Indication: ACUTE MYELOID LEUKAEMIA
     Dosage: 100 MG/M2, CONTINUOUS INFUSION ON DAYS 1-7
     Route: 041
  8. VINCRISTINE [Concomitant]
     Active Substance: VINCRISTINE
     Dosage: 2 MG, ON DAY 1
     Route: 042
  9. PREDNISOLONE. [Concomitant]
     Active Substance: PREDNISOLONE
     Indication: ACUTE MYELOID LEUKAEMIA
     Dosage: 30 MG/M2, ON DAYS 1-7
     Route: 048
  10. DOXORUBICIN HCL [Suspect]
     Active Substance: DOXORUBICIN HYDROCHLORIDE
     Indication: ACUTE MYELOID LEUKAEMIA
     Dosage: 30 MG/M2, 1X/DAY (DAYS 4 AND 5)
     Route: 042

REACTIONS (2)
  - Bradycardia [Unknown]
  - Cardiac arrest [Unknown]
